FAERS Safety Report 12561081 (Version 1)
Quarter: 2016Q3

REPORT INFORMATION
  Report Type: Report from Study
  Country: US (occurrence: US)
  Receive Date: 20160715
  Receipt Date: 20160715
  Transmission Date: 20161109
  Serious: No
  Sender: FDA-Public Use
  Company Number: PHEH2016US017023

PATIENT
  Age: 33 Year
  Sex: Female
  Weight: 72.5 kg

DRUGS (1)
  1. COSENTYX [Suspect]
     Active Substance: SECUKINUMAB
     Indication: PRODUCT USED FOR UNKNOWN INDICATION
     Dosage: 300 MG
     Route: 058

REACTIONS (7)
  - Nausea [Recovering/Resolving]
  - Urinary retention [Recovering/Resolving]
  - Syncope [Recovering/Resolving]
  - Urinary tract infection [Recovering/Resolving]
  - Fatigue [Recovering/Resolving]
  - Dysuria [Recovering/Resolving]
  - Dizziness [Recovering/Resolving]

NARRATIVE: CASE EVENT DATE: 20160701
